FAERS Safety Report 7138108-2 (Version None)
Quarter: 2010Q4

REPORT INFORMATION
  Report Type: 
  Country: None (occurrence: None)
  Receive Date: 20101109
  Receipt Date: 20100824
  Transmission Date: 20110411
  Serious: No
  Sender: FDA-Public Use
  Company Number: 2010000021

PATIENT
  Age: 5 Year
  Sex: Female

DRUGS (1)
  1. ULESFIA [Suspect]
     Indication: LICE INFESTATION
     Dosage: 1 APPLICATION ONCE, TOPICAL
     Route: 061
     Dates: start: 20100823, end: 20100823

REACTIONS (1)
  - MEDICATION ERROR [None]
